FAERS Safety Report 6442199-1 (Version None)
Quarter: 2009Q4

REPORT INFORMATION
  Report Type: 
  Country: None (occurrence: None)
  Receive Date: 20091116
  Receipt Date: 20090413
  Transmission Date: 20100525
  Serious: Yes (Other)
  Sender: FDA-Public Use
  Company Number: US-BAXTER-2008BH008505

PATIENT
  Age: 50 Year
  Sex: Male

DRUGS (22)
  1. HEPARIN SODIUM INJECTION [Suspect]
     Indication: CORONARY ARTERY BYPASS
     Dosage: DOSE UNIT:UNKNOWN
     Route: 042
     Dates: start: 20071107, end: 20071107
  2. HEPARIN SODIUM INJECTION [Suspect]
     Route: 040
     Dates: start: 20071109, end: 20071109
  3. HEPARIN SODIUM 5,000 UNITS IN DEXTROSE 5% [Suspect]
     Indication: PERCUTANEOUS CORONARY INTERVENTION
     Dosage: DOSE UNIT:UNKNOWN
     Route: 042
     Dates: start: 20071104, end: 20071113
  4. HEPARIN SODIUM 5,000 UNITS IN DEXTROSE 5% [Suspect]
     Indication: PROPHYLAXIS
     Dosage: DOSE UNIT:UNKNOWN
     Route: 042
     Dates: start: 20071104, end: 20071113
  5. HEPARIN SODIUM 5,000 UNITS IN DEXTROSE 5% [Suspect]
     Route: 042
     Dates: start: 20071109, end: 20071113
  6. HEPARIN SODIUM 5,000 UNITS IN DEXTROSE 5% [Suspect]
     Route: 042
     Dates: start: 20071109, end: 20071113
  7. HEPARIN SODIUM 5,000 UNITS IN DEXTROSE 5% [Suspect]
     Route: 042
     Dates: start: 20071101, end: 20071101
  8. HEPARIN SODIUM 5,000 UNITS IN DEXTROSE 5% [Suspect]
     Route: 042
     Dates: start: 20071101, end: 20071101
  9. HEPARIN SODIUM 5,000 UNITS IN DEXTROSE 5% [Suspect]
     Route: 042
     Dates: start: 20071110, end: 20071112
  10. HEPARIN SODIUM 5,000 UNITS IN DEXTROSE 5% [Suspect]
     Route: 042
     Dates: start: 20071110, end: 20071112
  11. HEPARIN SODIUM 5,000 UNITS IN DEXTROSE 5% [Suspect]
     Route: 042
     Dates: start: 20071112, end: 20071113
  12. HEPARIN SODIUM 5,000 UNITS IN DEXTROSE 5% [Suspect]
     Route: 042
     Dates: start: 20071112, end: 20071113
  13. PHENYTOIN [Concomitant]
     Indication: CONVULSION PROPHYLAXIS
     Route: 065
  14. DEPAKOTE [Concomitant]
     Indication: CONVULSION PROPHYLAXIS
     Route: 065
  15. WARFARIN SODIUM [Concomitant]
     Indication: PROPHYLAXIS
     Route: 065
  16. CHLORDIAZEPOXIDE [Concomitant]
     Indication: ALCOHOL ABUSE
     Route: 048
     Dates: start: 20071111
  17. LOPRESSOR [Concomitant]
     Indication: CARDIOVASCULAR DISORDER
     Route: 048
     Dates: start: 20071107
  18. AMIODARONE HCL [Concomitant]
     Indication: ARRHYTHMIA
     Route: 048
     Dates: start: 20071108
  19. ACETYLSALICYLIC ACID [Concomitant]
     Indication: THROMBOSIS PROPHYLAXIS
     Route: 048
     Dates: start: 20071108, end: 20081113
  20. LASIX [Concomitant]
     Indication: DRUG USE FOR UNKNOWN INDICATION
     Route: 042
     Dates: start: 20071112
  21. THIAMINE [Concomitant]
     Indication: SUPPLEMENTATION THERAPY
     Route: 042
     Dates: start: 20071107
  22. CYANOCOBALAMIN [Concomitant]
     Indication: SUPPLEMENTATION THERAPY
     Route: 048
     Dates: start: 20071107

REACTIONS (43)
  - ANGIOPATHY [None]
  - BRONCHOSPASM [None]
  - CARDIAC MURMUR [None]
  - CARDIOMEGALY [None]
  - CARDIOMYOPATHY [None]
  - CONFUSIONAL STATE [None]
  - DYSPNOEA [None]
  - DYSPNOEA EXERTIONAL [None]
  - EJECTION FRACTION [None]
  - EXTREMITY NECROSIS [None]
  - FEELING HOT [None]
  - HEPARIN-INDUCED THROMBOCYTOPENIA [None]
  - HEPATIC FAILURE [None]
  - HYPOTENSION [None]
  - IMPAIRED HEALING [None]
  - INFECTION [None]
  - LIVER DISORDER [None]
  - MALAISE [None]
  - MALNUTRITION [None]
  - METABOLIC ACIDOSIS [None]
  - MITRAL VALVE DISEASE [None]
  - MULTI-ORGAN FAILURE [None]
  - MUSCULOSKELETAL DISCOMFORT [None]
  - NASAL CONGESTION [None]
  - NEURITIS [None]
  - OEDEMA PERIPHERAL [None]
  - PAIN IN EXTREMITY [None]
  - PALPITATIONS [None]
  - PERIPHERAL ISCHAEMIA [None]
  - PHANTOM PAIN [None]
  - PLEURAL EFFUSION [None]
  - POST PROCEDURAL COMPLICATION [None]
  - RADIAL PULSE ABNORMAL [None]
  - RASH [None]
  - RENAL FAILURE [None]
  - SCROTAL OEDEMA [None]
  - SENSATION OF FOREIGN BODY [None]
  - SINUS HEADACHE [None]
  - THROMBOSIS [None]
  - TRICUSPID VALVE INCOMPETENCE [None]
  - VENTRICULAR DYSFUNCTION [None]
  - WHEEZING [None]
  - WHITE BLOOD CELL COUNT INCREASED [None]
